FAERS Safety Report 13323420 (Version 1)
Quarter: 2017Q1

REPORT INFORMATION
  Report Type: Spontaneous
  Country: US (occurrence: US)
  Receive Date: 20170310
  Receipt Date: 20170310
  Transmission Date: 20170428
  Serious: Yes (Other)
  Sender: FDA-Public Use
  Company Number: US-ASTRAZENECA-2017SE24053

PATIENT
  Age: 56 Year
  Sex: Female
  Weight: 38.6 kg

DRUGS (2)
  1. CRESTOR [Suspect]
     Active Substance: ROSUVASTATIN CALCIUM
     Indication: BLOOD CHOLESTEROL ABNORMAL
     Dosage: GENERIC CRESTOR, 10 MG DAILY
     Route: 048
  2. CRESTOR [Suspect]
     Active Substance: ROSUVASTATIN CALCIUM
     Indication: BLOOD CHOLESTEROL ABNORMAL
     Route: 048

REACTIONS (7)
  - Complication associated with device [Unknown]
  - Drug dispensing error [Unknown]
  - Anaphylactic shock [Unknown]
  - Adverse event [Unknown]
  - Body height decreased [Unknown]
  - Cardiac arrest [Unknown]
  - Malaise [Unknown]

NARRATIVE: CASE EVENT DATE: 2016
